FAERS Safety Report 10948321 (Version 1)
Quarter: 2015Q1

REPORT INFORMATION
  Report Type: Spontaneous
  Country: TR (occurrence: TR)
  Receive Date: 20150324
  Receipt Date: 20150324
  Transmission Date: 20150721
  Serious: Yes (Life-Threatening, Hospitalization, Other)
  Sender: FDA-Public Use
  Company Number: TR-009507513-1503TUR010807

PATIENT
  Sex: Male

DRUGS (1)
  1. ESMERON [Suspect]
     Active Substance: ROCURONIUM BROMIDE
     Dosage: 2 DF, UNK

REACTIONS (2)
  - Intentional overdose [Unknown]
  - Suicide attempt [Recovered/Resolved]
